FAERS Safety Report 13505139 (Version 2)
Quarter: 2017Q4

REPORT INFORMATION
  Report Type: Spontaneous
  Country: CA (occurrence: CA)
  Receive Date: 20170502
  Receipt Date: 20171121
  Transmission Date: 20180320
  Serious: Yes (Hospitalization)
  Sender: FDA-Public Use
  Company Number: CA-OTSUKA-2017_009727

PATIENT
  Age: 67 Year
  Sex: Male

DRUGS (6)
  1. TEVA OLANZAPINE [Suspect]
     Active Substance: OLANZAPINE
     Indication: SCHIZOAFFECTIVE DISORDER
     Dosage: UNK
     Route: 065
  2. ABILIFY MAINTENA [Suspect]
     Active Substance: ARIPIPRAZOLE
     Indication: SCHIZOAFFECTIVE DISORDER
     Dosage: 400 MG, UNK (3 MONTHE LATER)
     Route: 065
  3. TEVA OLANZAPINE [Suspect]
     Active Substance: OLANZAPINE
     Indication: BIPOLAR DISORDER
  4. ABILIFY MAINTENA [Suspect]
     Active Substance: ARIPIPRAZOLE
     Indication: BIPOLAR DISORDER
     Dosage: UNK (SUMMER)
     Route: 065
     Dates: start: 2014
  5. LATUDA [Suspect]
     Active Substance: LURASIDONE HYDROCHLORIDE
     Indication: SCHIZOAFFECTIVE DISORDER
     Dosage: UNK
     Route: 065
  6. LATUDA [Suspect]
     Active Substance: LURASIDONE HYDROCHLORIDE
     Indication: BIPOLAR DISORDER

REACTIONS (4)
  - Depression [Unknown]
  - Weight decreased [Unknown]
  - Hallucination [Unknown]
  - Psychotic disorder [Unknown]
